FAERS Safety Report 5374830-6 (Version None)
Quarter: 2007Q2

REPORT INFORMATION
  Report Type: 
  Country: None (occurrence: None)
  Receive Date: 20070629
  Receipt Date: 20070627
  Transmission Date: 20071010
  Serious: Yes (Other)
  Sender: FDA-Public Use
  Company Number: A0660773A

PATIENT
  Age: 45 Year
  Sex: Female

DRUGS (3)
  1. VENTOLIN [Suspect]
     Indication: DRUG USE FOR UNKNOWN INDICATION
  2. PARIET [Suspect]
     Indication: DRUG USE FOR UNKNOWN INDICATION
     Dosage: 40MG SINGLE DOSE
     Route: 048
  3. DICLOFENAC [Concomitant]
     Route: 048

REACTIONS (8)
  - ANAPHYLACTIC REACTION [None]
  - CONFUSIONAL STATE [None]
  - DYSPNOEA [None]
  - LOSS OF CONSCIOUSNESS [None]
  - MALAISE [None]
  - OEDEMA [None]
  - OEDEMA MOUTH [None]
  - RASH [None]
